FAERS Safety Report 6370883-7 (Version None)
Quarter: 2009Q3

REPORT INFORMATION
  Report Type: 
  Country: None (occurrence: None)
  Receive Date: 20090923
  Receipt Date: 20070611
  Transmission Date: 20100115
  Serious: No
  Sender: FDA-Public Use
  Company Number: US-ASTRAZENECA-2006UW23644

PATIENT
  Age: 15563 Day
  Sex: Male
  Weight: 79.4 kg

DRUGS (9)
  1. SEROQUEL [Suspect]
     Indication: PSYCHIATRIC SYMPTOM
     Dosage: 100-1000 MG
     Route: 048
     Dates: start: 20030421
  2. SEROQUEL [Suspect]
     Indication: SLEEP DISORDER
     Dosage: 100-1000 MG
     Route: 048
     Dates: start: 20030421
  3. HALDOL [Concomitant]
     Dates: start: 20060401
  4. RISPERDAL [Concomitant]
     Dosage: 1-2 MG
     Dates: start: 20030422
  5. LEXAPRO [Concomitant]
     Indication: DEPRESSION
     Dosage: 10-20 MG
     Route: 048
     Dates: start: 20030422
  6. DEPAKOTE [Concomitant]
     Indication: AFFECTIVE DISORDER
     Dosage: 500-2500 MG
     Dates: start: 20030422
  7. LITHIUM CARBONATE [Concomitant]
     Indication: AFFECTIVE DISORDER
     Dates: start: 20030422
  8. LITHIUM CARBONATE [Concomitant]
     Indication: TACHYPHRENIA
     Dates: start: 20030422
  9. PROZAC [Concomitant]
     Dates: start: 20030421

REACTIONS (3)
  - DIABETES MELLITUS [None]
  - HALLUCINATION, VISUAL [None]
  - TYPE 2 DIABETES MELLITUS [None]
